FAERS Safety Report 9523571 (Version 3)
Quarter: 2013Q4

REPORT INFORMATION
  Report Type: Report from Study
  Country: US (occurrence: US)
  Receive Date: 20130913
  Receipt Date: 20131021
  Transmission Date: 20140711
  Serious: Yes (Hospitalization)
  Sender: FDA-Public Use
  Company Number: US-CELGENEUS-163-21880-13091139

PATIENT
  Age: 68 Year
  Sex: Male

DRUGS (34)
  1. REVLIMID [Suspect]
     Indication: PLASMA CELL MYELOMA
     Dosage: 25 MILLIGRAM
     Route: 048
     Dates: start: 20130509, end: 20130828
  2. DEXAMETHASONE [Suspect]
     Indication: PLASMA CELL MYELOMA
     Dosage: 20 MILLIGRAM
     Route: 065
     Dates: start: 20130504, end: 20130913
  3. AMLODIPINE BESYLATE [Concomitant]
     Indication: HYPERTENSION
     Route: 065
  4. AMLODIPINE BESYLATE [Concomitant]
     Route: 065
  5. CALCIUM WITH VITAMIN D [Concomitant]
     Indication: PRODUCT USED FOR UNKNOWN INDICATION
     Route: 065
  6. CAPTOPRIL [Concomitant]
     Indication: HYPERTENSION
     Route: 065
  7. CAPTOPRIL [Concomitant]
     Dosage: 75 MILLIGRAM
     Route: 065
  8. ASPIRIN [Concomitant]
     Indication: THROMBOSIS PROPHYLAXIS
     Dosage: 81 MILLIGRAM
     Route: 065
  9. ZANTAC [Concomitant]
     Indication: PRODUCT USED FOR UNKNOWN INDICATION
     Dosage: 150 MILLIGRAM
     Route: 065
  10. BLOOD [Concomitant]
     Indication: PRODUCT USED FOR UNKNOWN INDICATION
     Dosage: 5UNITS
     Route: 065
  11. METOPROLOL [Concomitant]
     Indication: HYPERTENSION
     Dosage: 225 MILLIGRAM
     Route: 065
  12. LOVENOX [Concomitant]
     Indication: THROMBOSIS PROPHYLAXIS
     Route: 065
  13. VALTREX [Concomitant]
     Indication: GENITAL HERPES
     Dosage: 2000 MILLIGRAM
     Route: 048
     Dates: start: 20130922
  14. VALTREX [Concomitant]
     Indication: MOUTH ULCERATION
  15. ANCEF [Concomitant]
     Indication: URINARY TRACT INFECTION
     Route: 065
  16. CEFTRIAXONE [Concomitant]
     Indication: URINARY TRACT INFECTION BACTERIAL
     Route: 065
  17. NEXIUM [Concomitant]
     Indication: PRODUCT USED FOR UNKNOWN INDICATION
     Route: 065
  18. SCOPOLAMINE PATCH [Concomitant]
     Indication: PRODUCT USED FOR UNKNOWN INDICATION
     Route: 062
  19. SODIUM CHLORIDE [Concomitant]
     Indication: PRODUCT USED FOR UNKNOWN INDICATION
     Dosage: 3.6 PERCENT
     Route: 055
  20. SODIUM CHLORIDE [Concomitant]
     Route: 048
  21. MIRALAX [Concomitant]
     Indication: CONSTIPATION
     Dosage: 2
     Route: 048
  22. ARTIFICIAL TEARS [Concomitant]
     Indication: DRY EYE
     Dosage: 3 DROPS
     Route: 047
  23. ARTIFICIAL TEARS [Concomitant]
     Indication: EYE IRRITATION
  24. FINASTERIDE [Concomitant]
     Indication: URINARY RETENTION
     Dosage: 1 TABLET
     Route: 048
  25. CHLORHEXIDINE [Concomitant]
     Indication: PRODUCT USED FOR UNKNOWN INDICATION
     Dosage: .4 PERCENT
     Route: 065
  26. COLACE [Concomitant]
     Indication: CONSTIPATION
     Dosage: 300 MILLIGRAM
     Route: 048
  27. BISAC-EVAC [Concomitant]
     Indication: CONSTIPATION
     Dosage: 10 MILLIGRAM
     Route: 054
  28. IPRATROPIUM [Concomitant]
     Indication: WHEEZING
     Dosage: 500 MG/2.4 ML
     Route: 055
  29. IPRATROPIUM [Concomitant]
     Indication: SECRETION DISCHARGE
  30. ALBUTEROL [Concomitant]
     Indication: WHEEZING
     Dosage: 2.5MG/E ML
     Route: 055
  31. ALBUTEROL [Concomitant]
     Indication: SECRETION DISCHARGE
  32. CITRIC ACID [Concomitant]
     Indication: SKIN DISORDER
     Dosage: 4 PERCENT
     Route: 061
  33. OSMOLITE [Concomitant]
     Indication: FEEDING DISORDER
     Route: 048
  34. SEROQUEL [Concomitant]
     Indication: INSOMNIA
     Dosage: 12.5 MILLIGRAM

REACTIONS (1)
  - Cerebellar haemorrhage [Unknown]
